FAERS Safety Report 11086943 (Version 1)
Quarter: 2015Q2

REPORT INFORMATION
  Report Type: Spontaneous
  Country: US (occurrence: None)
  Receive Date: 20150501
  Receipt Date: 20150501
  Transmission Date: 20150821
  Serious: No
  Sender: FDA-Public Use
  Company Number: None

PATIENT
  Age: 80 Year
  Sex: Female
  Weight: 54.43 kg

DRUGS (14)
  1. LEVOTHYROXINE [Concomitant]
     Active Substance: LEVOTHYROXINE
  2. CITALOPRAM [Suspect]
     Active Substance: CITALOPRAM HYDROBROMIDE
  3. LISINOPRIL. [Concomitant]
     Active Substance: LISINOPRIL
  4. SIMVASTATIN (ZOCOR) [Concomitant]
  5. HCY GUARD [Concomitant]
  6. ENZYMES [Concomitant]
  7. SUBLINGUAL B-12 [Concomitant]
  8. CENTRUM SILVER [Concomitant]
     Active Substance: VITAMINS
  9. IBUPROFEN. [Concomitant]
     Active Substance: IBUPROFEN
  10. COENZYME Q10 [Concomitant]
     Active Substance: UBIDECARENONE
  11. PROBIOTIC [Concomitant]
     Active Substance: PROBIOTICS NOS
  12. NOPALEA [Concomitant]
     Active Substance: DIETARY SUPPLEMENT
  13. ASPIRIN. [Concomitant]
     Active Substance: ASPIRIN
  14. LUTEIN + ZFAXANTHIN [Concomitant]

REACTIONS (5)
  - Tremor [None]
  - Nausea [None]
  - Fatigue [None]
  - Insomnia [None]
  - Asthenia [None]

NARRATIVE: CASE EVENT DATE: 20150430
